FAERS Safety Report 9461672 (Version 1)
Quarter: 2013Q3

REPORT INFORMATION
  Report Type: Spontaneous
  Country: BE (occurrence: BE)
  Receive Date: 20130816
  Receipt Date: 20130816
  Transmission Date: 20140515
  Serious: Yes (Hospitalization)
  Sender: FDA-Public Use
  Company Number: BE-JNJFOC-20130803227

PATIENT
  Age: 0 Day
  Sex: Female
  Weight: 2.04 kg

DRUGS (2)
  1. SPORANOX [Suspect]
     Indication: VULVOVAGINAL MYCOTIC INFECTION
     Route: 064
     Dates: start: 20121201, end: 20121202
  2. METHYLDOPA [Suspect]
     Indication: HYPERTENSION
     Route: 064
     Dates: start: 20130622, end: 20130630

REACTIONS (2)
  - Premature baby [Not Recovered/Not Resolved]
  - Foetal exposure during pregnancy [Recovered/Resolved]
